FAERS Safety Report 24935342 (Version 1)
Quarter: 2025Q1

REPORT INFORMATION
  Report Type: Spontaneous
  Country: JP (occurrence: JP)
  Receive Date: 20250206
  Receipt Date: 20250206
  Transmission Date: 20250409
  Serious: Yes (Life-Threatening, Other)
  Sender: GLAXOSMITHKLINE
  Company Number: JP-TAKEDA-2025TJP001313

PATIENT

DRUGS (2)
  1. ZEJULA [Suspect]
     Active Substance: NIRAPARIB
     Indication: Ovarian cancer
     Dosage: 200 MILLIGRAM, QD
     Route: 048
     Dates: start: 20241108, end: 20241126
  2. ZEJULA [Suspect]
     Active Substance: NIRAPARIB
     Route: 048
     Dates: start: 20241225

REACTIONS (2)
  - Platelet count decreased [Not Recovered/Not Resolved]
  - Ovarian cancer [Unknown]

NARRATIVE: CASE EVENT DATE: 20241127
